FAERS Safety Report 12517912 (Version 1)
Quarter: 2016Q2

REPORT INFORMATION
  Report Type: Report from Study
  Country: BR (occurrence: BR)
  Receive Date: 20160630
  Receipt Date: 20160630
  Transmission Date: 20160815
  Serious: Yes (Death, Other)
  Sender: FDA-Public Use
  Company Number: PHHY2016BR089823

PATIENT
  Age: 66 Year
  Sex: Male
  Weight: 78 kg

DRUGS (2)
  1. EXELON PATCH [Suspect]
     Active Substance: RIVASTIGMINE
     Dosage: 9.5 MG (10CM2 PATCH) QD
     Route: 062
  2. EXELON PATCH [Suspect]
     Active Substance: RIVASTIGMINE
     Indication: DEMENTIA
     Dosage: 4.6 MG (5CM2 PATCH) QD
     Route: 062
     Dates: start: 2015

REACTIONS (5)
  - Sepsis [Fatal]
  - Septic shock [Fatal]
  - Decreased immune responsiveness [Unknown]
  - Atrial fibrillation [Fatal]
  - Erysipelas [Unknown]

NARRATIVE: CASE EVENT DATE: 201512
